FAERS Safety Report 7860633-7 (Version None)
Quarter: 2011Q4

REPORT INFORMATION
  Report Type: 
  Country: None (occurrence: None)
  Receive Date: 20111027
  Receipt Date: 20111018
  Transmission Date: 20120403
  Serious: Yes (Other)
  Sender: FDA-Public Use
  Company Number: ES-ASTRAZENECA-2011SE63033

PATIENT
  Age: 83 Year
  Sex: Female

DRUGS (12)
  1. KILOR [Suspect]
     Route: 048
     Dates: start: 20101020
  2. MIRTAZAPINA MERCK [Suspect]
     Route: 048
     Dates: start: 20101025
  3. ACETAMINOPHEN [Concomitant]
     Dates: start: 20070101
  4. PAZITAL [Concomitant]
     Dates: start: 20070101
  5. LEXATIN [Concomitant]
     Dates: start: 20070101
  6. ENTERO SILICONA [Suspect]
     Route: 048
     Dates: start: 20101030
  7. METAMIZOL CUVE [Suspect]
     Route: 048
     Dates: start: 20101020
  8. COROPRESS [Suspect]
     Route: 048
     Dates: start: 20101025
  9. TORSEMIDE [Concomitant]
     Dates: start: 20070101
  10. ARICEP FLAS [Concomitant]
     Dates: start: 20070101
  11. CRESTOR [Suspect]
     Route: 048
     Dates: start: 20101020
  12. INSULATARD NPH HUMAN [Concomitant]
     Dates: start: 20070101

REACTIONS (1)
  - OEDEMA [None]
